FAERS Safety Report 22237614 (Version 1)
Quarter: 2023Q2

REPORT INFORMATION
  Report Type: Spontaneous
  Country: US (occurrence: US)
  Receive Date: 20230421
  Receipt Date: 20230421
  Transmission Date: 20230721
  Serious: No
  Sender: FDA-Public Use
  Company Number: US-GSKCCFUS-Case-01675223_AE-94498

PATIENT
  Age: 90 Year
  Sex: Male

DRUGS (1)
  1. TRELEGY ELLIPTA [Suspect]
     Active Substance: FLUTICASONE FUROATE\UMECLIDINIUM BROMIDE\VILANTEROL TRIFENATATE
     Indication: Product used for unknown indication
     Dosage: UNK UNK BID, 100/62.5/25 MCG
     Dates: start: 20230406

REACTIONS (2)
  - Wrong technique in device usage process [Unknown]
  - Overdose [Unknown]

NARRATIVE: CASE EVENT DATE: 20230406
